FAERS Safety Report 9084138 (Version 1)
Quarter: 2013Q1

REPORT INFORMATION
  Report Type: Report from Study
  Country: US (occurrence: US)
  Receive Date: 20130130
  Receipt Date: 20130130
  Transmission Date: 20140127
  Serious: No
  Sender: FDA-Public Use
  Company Number: US-ABBOTT-12P-163-0978253-00

PATIENT
  Sex: Female

DRUGS (2)
  1. HUMIRA [Suspect]
     Route: 058
     Dates: start: 2006, end: 2009
  2. HUMIRA [Suspect]
     Dates: start: 20120907

REACTIONS (2)
  - Arthralgia [Unknown]
  - Drug ineffective [Unknown]
